FAERS Safety Report 21839210 (Version 1)
Quarter: 2023Q1

REPORT INFORMATION
  Report Type: Spontaneous
  Country: US (occurrence: None)
  Receive Date: 20230107
  Receipt Date: 20230107
  Transmission Date: 20230418
  Serious: Yes (Death)
  Sender: FDA-Public Use
  Company Number: None

PATIENT
  Age: 14 Year
  Sex: Female
  Weight: 61.1 kg

DRUGS (7)
  1. DEXAMETHASONE [Suspect]
     Active Substance: DEXAMETHASONE
     Indication: Product used for unknown indication
     Dates: end: 20221228
  2. ZINECARD [Suspect]
     Active Substance: DEXRAZOXANE HYDROCHLORIDE
     Dates: end: 20221227
  3. DOXORUBICIN HYDROCHLORIDE [Suspect]
     Active Substance: DOXORUBICIN HYDROCHLORIDE
     Dates: end: 20221227
  4. METHOTREXATE [Suspect]
     Active Substance: METHOTREXATE
     Dates: end: 20221213
  5. ONCASPAR [Suspect]
     Active Substance: PEGASPARGASE
     Dates: end: 20221216
  6. GLEEVEC [Suspect]
     Active Substance: IMATINIB MESYLATE
     Dates: end: 20221228
  7. VINCRISTINE SULFATE [Suspect]
     Active Substance: VINCRISTINE SULFATE
     Dates: end: 20221227

REACTIONS (6)
  - Staphylococcal sepsis [None]
  - Dyspnoea [None]
  - COVID-19 [None]
  - Cerebrovascular accident [None]
  - Multiple organ dysfunction syndrome [None]
  - Acute respiratory distress syndrome [None]

NARRATIVE: CASE EVENT DATE: 20221229
